FAERS Safety Report 16169160 (Version 1)
Quarter: 2019Q2

REPORT INFORMATION
  Report Type: Spontaneous
  Country: US (occurrence: US)
  Receive Date: 20190406
  Receipt Date: 20190406
  Transmission Date: 20190711
  Serious: Yes (Other)
  Sender: FDA-Public Use
  Company Number: None

PATIENT
  Age: 71 Year
  Sex: Female
  Weight: 62.55 kg

DRUGS (6)
  1. B2 [Concomitant]
  2. AIMOVIG [Suspect]
     Active Substance: ERENUMAB-AOOE
     Indication: MIGRAINE
     Dosage: ?          QUANTITY:1 INJECTION(S);OTHER FREQUENCY:1 INJECTION A MONT;?
     Route: 058
     Dates: end: 20181114
  3. FROVA [Concomitant]
     Active Substance: FROVATRIPTAN SUCCINATE
  4. TURMERIC [Concomitant]
     Active Substance: HERBALS\TURMERIC
  5. COQ10 [Concomitant]
     Active Substance: UBIDECARENONE
  6. MG [Concomitant]
     Active Substance: MAGNESIUM

REACTIONS (1)
  - Gastrointestinal pain [None]

NARRATIVE: CASE EVENT DATE: 20181212
